FAERS Safety Report 25624702 (Version 1)
Quarter: 2025Q3

REPORT INFORMATION
  Report Type: Report from Study
  Country: IN (occurrence: IN)
  Receive Date: 20250730
  Receipt Date: 20250730
  Transmission Date: 20251020
  Serious: Yes (Hospitalization)
  Sender: EISAI
  Company Number: IN-Eisai-EC-2025-193989

PATIENT
  Age: 74 Year
  Sex: Male

DRUGS (2)
  1. LENVATINIB [Suspect]
     Active Substance: LENVATINIB
     Indication: Hepatocellular carcinoma
     Dates: start: 20240625, end: 202502
  2. LENVATINIB [Suspect]
     Active Substance: LENVATINIB
     Dates: start: 202507

REACTIONS (3)
  - Abdominal distension [Recovering/Resolving]
  - Gait disturbance [Recovering/Resolving]
  - Weight decreased [Unknown]

NARRATIVE: CASE EVENT DATE: 20250101
